FAERS Safety Report 4970744-1 (Version None)
Quarter: 2006Q2

REPORT INFORMATION
  Report Type: 
  Country: None (occurrence: None)
  Receive Date: 20060406
  Receipt Date: 20060310
  Transmission Date: 20061013
  Serious: Yes (Hospitalization, Other)
  Sender: FDA-Public Use
  Company Number: THQ2006A0277

PATIENT
  Age: 60 Year
  Sex: Female

DRUGS (2)
  1. ACTOS [Suspect]
     Dosage: 30 MG
  2. PREGABALIN [Suspect]
     Indication: DIABETIC NEUROPATHY

REACTIONS (2)
  - DRUG INTERACTION [None]
  - PULMONARY OEDEMA [None]
